FAERS Safety Report 14347207 (Version 1)
Quarter: 2018Q1

REPORT INFORMATION
  Report Type: Spontaneous
  Country: GB (occurrence: GB)
  Receive Date: 20180103
  Receipt Date: 20180103
  Transmission Date: 20180509
  Serious: Yes (Other)
  Sender: FDA-Public Use
  Company Number: GB-BAUSCH-BL-2017-035850

PATIENT
  Age: 49 Year
  Sex: Female
  Weight: 88.9 kg

DRUGS (4)
  1. CLARITHROMYCIN. [Suspect]
     Active Substance: CLARITHROMYCIN
     Indication: INFECTED CYST
     Route: 048
     Dates: start: 20171127, end: 20171128
  2. FLORADIX [Concomitant]
     Active Substance: IRON
     Indication: VITAMIN SUPPLEMENTATION
  3. ERYTHROMYCIN. [Suspect]
     Active Substance: ERYTHROMYCIN
     Indication: INFECTED CYST
     Dosage: 125 MG IN TOTAL (CYCLICAL)
     Route: 048
     Dates: start: 20171127, end: 20171201
  4. ELLESTE DUET [Concomitant]
     Indication: PRODUCT USED FOR UNKNOWN INDICATION

REACTIONS (11)
  - Gastric dilatation [Not Recovered/Not Resolved]
  - Gastritis [Not Recovered/Not Resolved]
  - Pyrexia [Unknown]
  - Malaise [Unknown]
  - Decreased appetite [Unknown]
  - Renal pain [Unknown]
  - Abdominal pain lower [Unknown]
  - Back pain [Not Recovered/Not Resolved]
  - Abdominal pain upper [Not Recovered/Not Resolved]
  - Hypersensitivity [Unknown]
  - Pain [Unknown]

NARRATIVE: CASE EVENT DATE: 20171127
